FAERS Safety Report 12616550 (Version 1)
Quarter: 2016Q3

REPORT INFORMATION
  Report Type: Report from Study
  Country: BR (occurrence: BR)
  Receive Date: 20160802
  Receipt Date: 20160802
  Transmission Date: 20161109
  Serious: Yes (Disabling)
  Sender: FDA-Public Use
  Company Number: BR-ABBVIE-16K-020-1690269-00

PATIENT
  Sex: Male
  Weight: 79 kg

DRUGS (1)
  1. HUMIRA [Suspect]
     Active Substance: ADALIMUMAB
     Indication: RHEUMATOID ARTHRITIS
     Route: 058
     Dates: start: 20090101

REACTIONS (5)
  - Therapeutic response unexpected [Unknown]
  - Pre-existing condition improved [Unknown]
  - Rheumatoid arthritis [Recovered/Resolved]
  - Swelling [Recovered/Resolved]
  - Abasia [Unknown]

NARRATIVE: CASE EVENT DATE: 2014
